FAERS Safety Report 23609794 (Version 1)
Quarter: 2024Q1

REPORT INFORMATION
  Report Type: Spontaneous
  Country: PL (occurrence: PL)
  Receive Date: 20240308
  Receipt Date: 20240308
  Transmission Date: 20240409
  Serious: Yes (Other)
  Sender: FDA-Public Use
  Company Number: None

PATIENT
  Age: 66 Year
  Sex: Male
  Weight: 170 kg

DRUGS (1)
  1. GEMCITABINE [Suspect]
     Active Substance: GEMCITABINE
     Indication: Product used for unknown indication
     Dosage: STRENGHT: 1.0/10 ML

REACTIONS (2)
  - Asthenia [Recovering/Resolving]
  - Embolism [Recovering/Resolving]

NARRATIVE: CASE EVENT DATE: 20200902
